FAERS Safety Report 7813080-8 (Version None)
Quarter: 2011Q4

REPORT INFORMATION
  Report Type: 
  Country: None (occurrence: None)
  Receive Date: 20111013
  Receipt Date: 20111006
  Transmission Date: 20120403
  Serious: Yes (Other)
  Sender: FDA-Public Use
  Company Number: PHHY2011AU78222

PATIENT
  Sex: Female
  Weight: 75 kg

DRUGS (2)
  1. DITROPAN [Concomitant]
     Dosage: 5 MG, QD
     Dates: start: 20020101
  2. GILENYA [Suspect]
     Indication: MULTIPLE SCLEROSIS
     Dosage: 0.5 MG, DAILY
     Route: 048
     Dates: start: 20110615

REACTIONS (1)
  - POLYMENORRHOEA [None]
